FAERS Safety Report 9971444 (Version 1)
Quarter: 2014Q1

REPORT INFORMATION
  Report Type: Spontaneous
  Country: US (occurrence: None)
  Receive Date: 20140304
  Receipt Date: 20140304
  Transmission Date: 20141002
  Serious: Yes (Hospitalization)
  Sender: FDA-Public Use
  Company Number: FK201400691

PATIENT
  Age: 29 Year
  Sex: Female

DRUGS (4)
  1. CISPLATIN [Suspect]
     Indication: HODGKIN^S DISEASE
  2. ETOPOSIDE (ETOPOSIDE) [Concomitant]
  3. METHYLPREDNISOLONE  (METHYLPREDISOLONE) [Concomitant]
  4. CYTARABINE (CYTARABINE) [Concomitant]

REACTIONS (4)
  - Sinus bradycardia [None]
  - Cholecystitis [None]
  - Hypokalaemia [None]
  - Hypomagnesaemia [None]
